FAERS Safety Report 12210921 (Version 5)
Quarter: 2016Q2

REPORT INFORMATION
  Report Type: Report from Study
  Country: BR (occurrence: BR)
  Receive Date: 20160325
  Receipt Date: 20160525
  Transmission Date: 20160815
  Serious: Yes (Other)
  Sender: FDA-Public Use
  Company Number: PHHY2015BR146040

PATIENT
  Age: 49 Year
  Sex: Male
  Weight: 105 kg

DRUGS (2)
  1. TASIGNA [Suspect]
     Active Substance: NILOTINIB
     Indication: CHRONIC MYELOID LEUKAEMIA
     Dosage: 2 DF OF 200 MG, Q12H (2 CAPSULES IN THE MORNING AND 2 CAPSULES AT NIGHT)
     Route: 048
     Dates: start: 201504
  2. PURAN [Concomitant]
     Active Substance: LEVOTHYROXINE SODIUM
     Indication: THYROID DISORDER
     Dosage: 1 DF, QHS
     Route: 048

REACTIONS (16)
  - High density lipoprotein decreased [Recovered/Resolved]
  - Lacrimation increased [Not Recovered/Not Resolved]
  - Hypersensitivity [Unknown]
  - Peripheral swelling [Recovering/Resolving]
  - Rash [Not Recovered/Not Resolved]
  - Arthritis [Recovering/Resolving]
  - Pruritus generalised [Not Recovered/Not Resolved]
  - Blood triglycerides increased [Recovered/Resolved]
  - Mass [Not Recovered/Not Resolved]
  - Blood cholesterol abnormal [Unknown]
  - Enthesopathy [Recovering/Resolving]
  - Bone pain [Unknown]
  - Pain in extremity [Recovering/Resolving]
  - Thyroid mass [Unknown]
  - Skin papilloma [Not Recovered/Not Resolved]
  - Bone disorder [Unknown]

NARRATIVE: CASE EVENT DATE: 201507
